FAERS Safety Report 5021141-4 (Version None)
Quarter: 2006Q2

REPORT INFORMATION
  Report Type: 
  Country: None (occurrence: None)
  Receive Date: 20060607
  Receipt Date: 20060607
  Transmission Date: 20061013
  Serious: Yes (Hospitalization)
  Sender: FDA-Public Use
  Company Number: None

PATIENT
  Sex: Female
  Weight: 68.4932 kg

DRUGS (11)
  1. OXALIPLATIN [Suspect]
     Indication: METASTATIC GASTRIC CANCER
     Dosage: 85MG/M2
     Dates: start: 20060427
  2. OXALIPLATIN [Suspect]
     Indication: METASTATIC GASTRIC CANCER
     Dosage: 85MG/M2
     Dates: start: 20060504
  3. OXALIPLATIN [Suspect]
     Indication: METASTATIC GASTRIC CANCER
     Dosage: 85MG/M2
     Dates: start: 20060511
  4. TAXOTERE [Suspect]
     Indication: METASTATIC GASTRIC CANCER
     Dosage: 25MG/M2
  5. FUDR [Suspect]
     Indication: METASTATIC GASTRIC CANCER
     Dosage: 110MG/KG
  6. LEUCOVORIN [Suspect]
     Indication: METASTATIC GASTRIC CANCER
     Dosage: 500MG/M2
  7. REGLAN [Concomitant]
  8. PROCRIT [Concomitant]
  9. LOMOTIL [Concomitant]
  10. MAGIC MIX SOLUTION [Concomitant]
  11. NEUPOGEN [Concomitant]

REACTIONS (3)
  - ABDOMINAL PAIN [None]
  - NAUSEA [None]
  - VOMITING [None]
